FAERS Safety Report 15583515 (Version 3)
Quarter: 2019Q2

REPORT INFORMATION
  Report Type: Spontaneous
  Country: US (occurrence: US)
  Receive Date: 20181105
  Receipt Date: 20190610
  Transmission Date: 20190711
  Serious: Yes (Other)
  Sender: FDA-Public Use
  Company Number: US-SUN PHARMACEUTICAL INDUSTRIES LTD-2018US-190413

PATIENT
  Age: 33 Year
  Sex: Female

DRUGS (4)
  1. CALCITONIN [Suspect]
     Active Substance: CALCITONIN
     Indication: HYPERCALCAEMIA
     Dosage: 560 IU EVERY 6 HOURS
     Route: 058
  2. PREDNISONE. [Suspect]
     Active Substance: PREDNISONE
     Dosage: UPTITRATED AFTER 3 DAYS TO 30 MILLIGRAM, DAILY
     Route: 048
  3. PREDNISONE. [Suspect]
     Active Substance: PREDNISONE
     Indication: HYPERCALCAEMIA
     Dosage: 20 MILLIGRAM, DAILY
     Route: 048
  4. CINACALCET. [Suspect]
     Active Substance: CINACALCET
     Indication: HYPERCALCAEMIA
     Dosage: 30 MILLIGRAM, BID
     Route: 048

REACTIONS (3)
  - Off label use [Not Recovered/Not Resolved]
  - Exposure during pregnancy [Unknown]
  - Drug ineffective [Unknown]
